FAERS Safety Report 7526143-1 (Version None)
Quarter: 2011Q2

REPORT INFORMATION
  Report Type: 
  Country: None (occurrence: None)
  Receive Date: 20110606
  Receipt Date: 20110526
  Transmission Date: 20111010
  Serious: Yes (Hospitalization)
  Sender: FDA-Public Use
  Company Number: CH-ASTRAZENECA-2011SE32749

PATIENT
  Age: 76 Year
  Sex: Female
  Weight: 88 kg

DRUGS (16)
  1. ATACAND [Suspect]
     Indication: ESSENTIAL HYPERTENSION
     Route: 048
     Dates: end: 20110419
  2. TEGRETOL-XR [Suspect]
     Route: 048
     Dates: start: 19930101, end: 20110419
  3. TRAMADOL HCL [Suspect]
     Indication: ARTHRALGIA
     Route: 048
     Dates: end: 20110419
  4. ASPIRIN [Concomitant]
     Route: 048
  5. POTASSIUM CHLORIDE [Concomitant]
     Route: 048
  6. CALCIUM SANDOZ FORTE+D [Concomitant]
     Route: 048
  7. PARLODEL [Concomitant]
     Route: 048
     Dates: start: 19930101
  8. IMPORTAL [Concomitant]
     Route: 048
  9. FERRUM HAUSMAN [Concomitant]
     Route: 048
  10. OMEZOL MEPHA [Suspect]
     Route: 048
     Dates: end: 20110419
  11. ACETAMINOPHEN [Suspect]
     Indication: ARTHRALGIA
     Route: 048
     Dates: end: 20110419
  12. LASIX [Suspect]
     Indication: ESSENTIAL HYPERTENSION
     Route: 048
     Dates: end: 20110419
  13. ATORVASTATIN CALCIUM [Suspect]
     Indication: HYPERCHOLESTEROLAEMIA
     Route: 048
     Dates: end: 20110419
  14. NEBIVOLOL HCL [Concomitant]
     Route: 048
  15. ALLOPURINOL [Suspect]
     Indication: GOUT
     Route: 048
     Dates: start: 20110407, end: 20110420
  16. BONVIVA [Concomitant]
     Route: 048

REACTIONS (4)
  - HYPERBILIRUBINAEMIA [None]
  - INTERNATIONAL NORMALISED RATIO INCREASED [None]
  - RENAL FAILURE ACUTE [None]
  - HEPATOCELLULAR INJURY [None]
